FAERS Safety Report 24220342 (Version 1)
Quarter: 2024Q3

REPORT INFORMATION
  Report Type: Spontaneous
  Country: US (occurrence: US)
  Receive Date: 20240818
  Receipt Date: 20240818
  Transmission Date: 20241016
  Serious: Yes (Other)
  Sender: AUROBINDO
  Company Number: US-AUROBINDO-AUR-APL-2024-039732

PATIENT
  Age: 59 Year
  Sex: Male
  Weight: 134.26 kg

DRUGS (8)
  1. AMBRISENTAN [Suspect]
     Active Substance: AMBRISENTAN
     Indication: Product used for unknown indication
     Dosage: UNK
     Route: 065
  2. FUROSEMIDE [Suspect]
     Active Substance: FUROSEMIDE
     Indication: Pulmonary arterial hypertension
     Dosage: 80 MILLIGRAM, TWO TIMES A DAY
     Route: 065
  3. METOLAZONE [Suspect]
     Active Substance: METOLAZONE
     Indication: Pulmonary arterial hypertension
     Dosage: 2.5 MILLIGRAM (ONCE A WEEKLY)
     Route: 065
  4. METOLAZONE [Suspect]
     Active Substance: METOLAZONE
     Dosage: 2.5 MILLIGRAM (TWICE WEEKLY)
     Route: 065
  5. METOLAZONE [Suspect]
     Active Substance: METOLAZONE
     Dosage: 2.5 MILLIGRAM (ONCE A WEEKLY)
     Route: 065
  6. REMODULIN [Suspect]
     Active Substance: TREPROSTINIL
     Indication: Pulmonary arterial hypertension
     Dosage: DOSE WAS INCREASED TO 38 NG/KG/MIN.
     Route: 058
  7. RIOCIGUAT [Concomitant]
     Active Substance: RIOCIGUAT
     Indication: Product used for unknown indication
     Dosage: UNK
     Route: 065
  8. SEMAGLUTIDE [Concomitant]
     Active Substance: SEMAGLUTIDE
     Indication: Product used for unknown indication
     Dosage: UNK
     Route: 065

REACTIONS (1)
  - Drug ineffective [Unknown]
